FAERS Safety Report 25175115 (Version 2)
Quarter: 2025Q3

REPORT INFORMATION
  Report Type: Spontaneous
  Country: US (occurrence: US)
  Receive Date: 20250408
  Receipt Date: 20250709
  Transmission Date: 20251020
  Serious: No
  Sender: TG THERAPEUTICS
  Company Number: US-TG THERAPEUTICS INC.-TGT004472

PATIENT

DRUGS (23)
  1. BRIUMVI [Suspect]
     Active Substance: UBLITUXIMAB-XIIY
     Indication: Multiple sclerosis
     Route: 042
     Dates: start: 20240912, end: 20240912
  2. BRIUMVI [Suspect]
     Active Substance: UBLITUXIMAB-XIIY
     Route: 042
     Dates: start: 20240926, end: 20240926
  3. BRIUMVI [Suspect]
     Active Substance: UBLITUXIMAB-XIIY
     Route: 042
     Dates: start: 20250303, end: 20250303
  4. NORTRIPTYLINE [Concomitant]
     Active Substance: NORTRIPTYLINE
     Indication: Depression
  5. MIRTAZAPINE [Concomitant]
     Active Substance: MIRTAZAPINE
     Indication: Depression
     Route: 048
     Dates: start: 20240806
  6. MECLIZINE [Concomitant]
     Active Substance: MECLIZINE HYDROCHLORIDE
     Indication: Dizziness
     Route: 048
  7. ROBAXIN [Concomitant]
     Active Substance: METHOCARBAMOL
     Indication: Muscle spasms
     Dosage: 500 MILLIGRAM, QID
     Route: 048
  8. LAMOTRIGINE [Concomitant]
     Active Substance: LAMOTRIGINE
     Indication: Anxiety
     Route: 048
  9. LAMOTRIGINE [Concomitant]
     Active Substance: LAMOTRIGINE
     Indication: Depression
  10. EMGALITY [Concomitant]
     Active Substance: GALCANEZUMAB-GNLM
     Indication: Migraine
     Route: 058
  11. PROMETHAZINE [Concomitant]
     Active Substance: PROMETHAZINE HYDROCHLORIDE
     Indication: Nausea
     Route: 048
     Dates: start: 20240422
  12. CIPROFLOXACIN [Concomitant]
     Active Substance: CIPROFLOXACIN
     Indication: Product used for unknown indication
     Route: 047
  13. MOMETASONE [Concomitant]
     Active Substance: MOMETASONE
     Indication: Hypersensitivity
     Route: 045
  14. TYLENOL WITH CODEINE [Concomitant]
     Active Substance: ACETAMINOPHEN\CODEINE PHOSPHATE
     Indication: Pain
     Dosage: 300MG/30MG, 1 TAB BID
     Route: 048
  15. SERTRALINE [Concomitant]
     Active Substance: SERTRALINE HYDROCHLORIDE
     Indication: Depression
     Dosage: 100 MILLIGRAM, BID
     Route: 048
     Dates: start: 20231023
  16. PREGABALIN [Concomitant]
     Active Substance: PREGABALIN
     Indication: Fibromyalgia
     Dosage: 75 MILLIGRAM, QD
     Route: 048
     Dates: start: 20231023
  17. LEVOTHYROXINE [Concomitant]
     Active Substance: LEVOTHYROXINE
     Indication: Hypothyroidism
     Dosage: 100 MILLIGRAM, QD
     Route: 048
  18. PHENTERMINE [Concomitant]
     Active Substance: PHENTERMINE
     Indication: Weight control
     Dosage: 37.5 MILLIGRAM, QD
     Route: 048
  19. NURTEC ODT [Concomitant]
     Active Substance: RIMEGEPANT SULFATE
     Indication: Migraine
     Route: 048
  20. MONTELUKAST [Concomitant]
     Active Substance: MONTELUKAST
     Indication: Hypersensitivity
     Dosage: 10 MILLIGRAM, QD
     Route: 048
  21. ALPRAZOLAM [Concomitant]
     Active Substance: ALPRAZOLAM
     Indication: Anxiety
     Route: 048
  22. ALPRAZOLAM [Concomitant]
     Active Substance: ALPRAZOLAM
     Indication: Restlessness
  23. DEPO-PROVERA [Concomitant]
     Active Substance: MEDROXYPROGESTERONE ACETATE
     Indication: Contraception
     Route: 045
     Dates: start: 20230718

REACTIONS (1)
  - Infusion related reaction [Unknown]

NARRATIVE: CASE EVENT DATE: 20240912
